FAERS Safety Report 7788587-2 (Version None)
Quarter: 2011Q3

REPORT INFORMATION
  Report Type: 
  Country: None (occurrence: None)
  Receive Date: 20110928
  Receipt Date: 20110913
  Transmission Date: 20111222
  Serious: Yes (Other)
  Sender: FDA-Public Use
  Company Number: B0749701A

PATIENT
  Age: 49 Year
  Sex: Female

DRUGS (6)
  1. LAMIVUDINE [Suspect]
     Indication: ANTIRETROVIRAL THERAPY
     Dosage: 150 MG / TWICE PER DAY /
     Dates: start: 20090201
  2. ZIDOVUDINE [Suspect]
     Indication: ANTIRETROVIRAL THERAPY
     Dosage: 300 MG / TWICE PER DAY /
     Dates: start: 20090201
  3. EFAVIRENZ [Suspect]
     Indication: ANTIRETROVIRAL THERAPY
     Dosage: 600 MG / AT NIGHT /
     Dates: start: 20090101
  4. PYRIDOSTIGMINE BROMIDE [Concomitant]
  5. ATAZANAVIR [Suspect]
     Indication: ANTIRETROVIRAL THERAPY
     Dates: start: 20090201
  6. STAVUDINE [Suspect]
     Indication: ANTIRETROVIRAL THERAPY
     Dosage: 30 MG / TWICE PER DAY /
     Dates: start: 20090101

REACTIONS (4)
  - RASH [None]
  - JAUNDICE [None]
  - IMMUNE RECONSTITUTION SYNDROME [None]
  - MUSCULAR WEAKNESS [None]
